FAERS Safety Report 7593134-4 (Version None)
Quarter: 2011Q3

REPORT INFORMATION
  Report Type: 
  Country: None (occurrence: None)
  Receive Date: 20110706
  Receipt Date: 20110623
  Transmission Date: 20111222
  Serious: Yes (Hospitalization)
  Sender: FDA-Public Use
  Company Number: RO-JNJFOC-20110611423

PATIENT
  Sex: Male

DRUGS (4)
  1. METHOTREXATE [Concomitant]
     Indication: PSORIATIC ARTHROPATHY
     Dates: start: 20050801
  2. HIDRAZIDA [Concomitant]
     Dates: start: 20110317
  3. OMEPRAZOLE [Concomitant]
     Route: 048
     Dates: start: 20110308
  4. REMICADE [Suspect]
     Indication: PSORIATIC ARTHROPATHY
     Route: 042
     Dates: start: 20070129, end: 20110621

REACTIONS (4)
  - PULSE ABSENT [None]
  - DYSPNOEA [None]
  - COUGH [None]
  - PSYCHOMOTOR HYPERACTIVITY [None]
